FAERS Safety Report 10447344 (Version 2)
Quarter: 2014Q3

REPORT INFORMATION
  Report Type: Spontaneous
  Country: US (occurrence: US)
  Receive Date: 20140911
  Receipt Date: 20140911
  Transmission Date: 20150326
  Serious: Yes (Hospitalization)
  Sender: FDA-Public Use
  Company Number: US-ASTRAZENECA-2010SE13594

PATIENT
  Age: 76 Year
  Sex: Female
  Weight: 67.6 kg

DRUGS (10)
  1. LISINOPRIL. [Suspect]
     Active Substance: LISINOPRIL
     Route: 048
  2. CRESTOR [Suspect]
     Active Substance: ROSUVASTATIN CALCIUM
     Route: 048
     Dates: start: 201407
  3. BLOOD PRESSURE MEDICATIONS UNK [Concomitant]
  4. CRESTOR [Suspect]
     Active Substance: ROSUVASTATIN CALCIUM
     Route: 048
  5. OMEPRAZOLE. [Suspect]
     Active Substance: OMEPRAZOLE
     Indication: GASTROOESOPHAGEAL REFLUX DISEASE
     Route: 048
     Dates: start: 2014
  6. OMEPRAZOLE. [Suspect]
     Active Substance: OMEPRAZOLE
     Indication: GASTROOESOPHAGEAL REFLUX DISEASE
     Dosage: OTC , 40 MG, PRN
     Route: 048
     Dates: start: 2014
  7. TEKURNA [Concomitant]
  8. PROTONIX [Concomitant]
     Active Substance: PANTOPRAZOLE SODIUM
     Dosage: GENERIC
  9. NEXIUM [Suspect]
     Active Substance: ESOMEPRAZOLE MAGNESIUM
     Indication: GASTROOESOPHAGEAL REFLUX DISEASE
     Route: 048
  10. DIOVAN [Concomitant]
     Active Substance: VALSARTAN

REACTIONS (19)
  - Drug intolerance [Unknown]
  - Back pain [Unknown]
  - Hypertension [Unknown]
  - Malaise [Unknown]
  - Off label use [Unknown]
  - Pain in extremity [Unknown]
  - Burning sensation [Unknown]
  - Arthralgia [Unknown]
  - Blood pressure diastolic decreased [Unknown]
  - Feeling abnormal [Unknown]
  - Cough [Unknown]
  - Drug ineffective [Unknown]
  - Blood cholesterol increased [Unknown]
  - Intentional product misuse [Unknown]
  - Feeling hot [Unknown]
  - Dehydration [Unknown]
  - Fibromyalgia [Unknown]
  - Blood pressure inadequately controlled [Unknown]
  - Arthritis [Unknown]

NARRATIVE: CASE EVENT DATE: 2004
